FAERS Safety Report 18908603 (Version 1)
Quarter: 2021Q1

REPORT INFORMATION
  Report Type: Spontaneous
  Country: US (occurrence: US)
  Receive Date: 20210217
  Receipt Date: 20210217
  Transmission Date: 20210420
  Serious: No
  Sender: FDA-Public Use
  Company Number: None

PATIENT
  Sex: Female

DRUGS (1)
  1. HUMIRA [Suspect]
     Active Substance: ADALIMUMAB
     Indication: RHEUMATOID ARTHRITIS
     Dosage: OTHER DOSE:40MG/0.4ML ;OTHER FREQUENCY:EVERY 14 DAYS;?
     Route: 058
     Dates: start: 20201015

REACTIONS (5)
  - Insomnia [None]
  - Confusional state [None]
  - Therapeutic product effect decreased [None]
  - Skin reaction [None]
  - Amnesia [None]
